FAERS Safety Report 6905543-4 (Version None)
Quarter: 2010Q3

REPORT INFORMATION
  Report Type: 
  Country: None (occurrence: None)
  Receive Date: 20100804
  Receipt Date: 20100726
  Transmission Date: 20110219
  Serious: Yes (Other)
  Sender: FDA-Public Use
  Company Number: US-PFIZER INC-2010094128

PATIENT
  Sex: Female

DRUGS (2)
  1. XALATAN [Suspect]
     Indication: GLAUCOMA
     Dosage: 1 DROP, DAILY, EACH EYE AT NIGHT
     Route: 047
  2. XALATAN [Suspect]
     Indication: INTRAOCULAR PRESSURE FLUCTUATION

REACTIONS (2)
  - ARTHROPATHY [None]
  - BREAST CANCER [None]
